FAERS Safety Report 23529473 (Version 5)
Quarter: 2024Q2

REPORT INFORMATION
  Report Type: Spontaneous
  Country: US (occurrence: US)
  Receive Date: 20240216
  Receipt Date: 20240524
  Transmission Date: 20240716
  Serious: No
  Sender: FDA-Public Use
  Company Number: US-002147023-NVSC2024US032844

PATIENT
  Sex: Male

DRUGS (1)
  1. COSENTYX [Suspect]
     Active Substance: SECUKINUMAB
     Indication: Product used for unknown indication
     Dosage: 300 MG, QMO (2X150 MG ONCE A MONTH)
     Route: 065

REACTIONS (4)
  - Device delivery system issue [Unknown]
  - Device leakage [Unknown]
  - Product dose omission issue [Unknown]
  - Syringe issue [Unknown]
